FAERS Safety Report 17745955 (Version 1)
Quarter: 2020Q2

REPORT INFORMATION
  Report Type: Spontaneous
  Country: US (occurrence: US)
  Receive Date: 20200505
  Receipt Date: 20200505
  Transmission Date: 20200714
  Serious: Yes (Hospitalization)
  Sender: FDA-Public Use
  Company Number: US-MYLANLABS-2020M1044191

PATIENT
  Age: 56 Year
  Sex: Male
  Weight: 70.3 kg

DRUGS (5)
  1. DEXMEDETOMIDINE. [Suspect]
     Active Substance: DEXMEDETOMIDINE
     Indication: AGITATION
     Route: 042
  2. HALOPERIDOL. [Suspect]
     Active Substance: HALOPERIDOL
     Indication: AGITATION
     Dosage: 5 MILLIGRAM
     Route: 042
  3. KETAMINE [Suspect]
     Active Substance: KETAMINE
     Indication: AGITATION
     Dosage: TOTAL DOSE 200MG
     Route: 030
  4. LORAZEPAM. [Suspect]
     Active Substance: LORAZEPAM
     Indication: AGITATION
     Dosage: 24 MILLIGRAM
     Route: 042
  5. LORAZEPAM. [Suspect]
     Active Substance: LORAZEPAM
     Dosage: 12 MILLIGRAM
     Route: 042

REACTIONS (1)
  - Drug ineffective [Unknown]
